FAERS Safety Report 8971661 (Version 1)
Quarter: 2012Q4

REPORT INFORMATION
  Report Type: 
  Country: US (occurrence: US)
  Receive Date: 20121217
  Receipt Date: 20121217
  Transmission Date: 20130627
  Serious: Yes (Other)
  Sender: FDA-Public Use
  Company Number: US-PFIZER INC-2012316943

PATIENT
  Age: 44 Year
  Sex: Female
  Weight: 65.76 kg

DRUGS (5)
  1. LYRICA [Suspect]
     Indication: FIBROMYALGIA
     Dosage: 225 mg,daily
     Dates: start: 20100916
  2. LYRICA [Suspect]
     Dosage: 225 mg, 3x/day
     Dates: start: 201108, end: 201207
  3. LYRICA [Suspect]
     Dosage: UNK
     Dates: start: 2012
  4. PERCOCET [Concomitant]
     Indication: PAIN
     Dosage: UNK
  5. CLONAZEPAM [Concomitant]
     Indication: ANXIETY
     Dosage: 0.5 mg, 3x/day

REACTIONS (19)
  - Convulsion [Not Recovered/Not Resolved]
  - Oedema mouth [Not Recovered/Not Resolved]
  - Pharyngeal oedema [Not Recovered/Not Resolved]
  - Vision blurred [Not Recovered/Not Resolved]
  - Oedema peripheral [Not Recovered/Not Resolved]
  - Arthropathy [Recovered/Resolved]
  - Drug ineffective [Unknown]
  - Amnesia [Not Recovered/Not Resolved]
  - Disturbance in attention [Not Recovered/Not Resolved]
  - Memory impairment [Not Recovered/Not Resolved]
  - Feeling drunk [Not Recovered/Not Resolved]
  - Arthropathy [Not Recovered/Not Resolved]
  - Pain [Not Recovered/Not Resolved]
  - Weight increased [Not Recovered/Not Resolved]
  - Euphoric mood [Not Recovered/Not Resolved]
  - Drug withdrawal syndrome [Not Recovered/Not Resolved]
  - Influenza like illness [Not Recovered/Not Resolved]
  - Diarrhoea [Unknown]
  - Asthenia [Not Recovered/Not Resolved]
